FAERS Safety Report 9249835 (Version 2)
Quarter: 2013Q2

REPORT INFORMATION
  Report Type: Report from Study
  Country: AU (occurrence: AU)
  Receive Date: 20130423
  Receipt Date: 20130506
  Transmission Date: 20140414
  Serious: Yes (Other)
  Sender: FDA-Public Use
  Company Number: PHHY2013AU032415

PATIENT
  Age: 74 Year
  Sex: Male

DRUGS (7)
  1. ACLASTA [Suspect]
     Dosage: 5 MG, UNK
     Route: 042
     Dates: start: 20100427
  2. ACLASTA [Suspect]
     Dosage: 5 MG, UNK
     Route: 042
     Dates: start: 20110412
  3. ACLASTA [Suspect]
     Dosage: 5 MG, UNK
     Route: 042
     Dates: start: 20120418
  4. ARISTOCORT [Concomitant]
     Indication: PSORIASIS
     Dosage: 1 DF, BID (1 B.D.P.R.N)
  5. ENDEP [Concomitant]
     Indication: PROSTATISM
     Dosage: 1 DF, (1 NOCTE)
     Route: 048
  6. SOMAC [Concomitant]
     Indication: GASTROOESOPHAGEAL REFLUX DISEASE
     Dosage: 1 DF, QD
     Route: 048
  7. VITAMIN B12 [Concomitant]
     Dosage: 2 DF, (2 DAILY)

REACTIONS (5)
  - Intervertebral disc protrusion [Unknown]
  - Sciatica [Unknown]
  - Sinusitis [Unknown]
  - Blood bicarbonate decreased [Unknown]
  - Blood calcium decreased [Unknown]
